FAERS Safety Report 8244895-2 (Version None)
Quarter: 2012Q1

REPORT INFORMATION
  Report Type: 
  Country: None (occurrence: None)
  Receive Date: 20120329
  Receipt Date: 20110817
  Transmission Date: 20120608
  Serious: Yes (Other)
  Sender: FDA-Public Use
  Company Number: US-MYLANLABS-2011S1017267

PATIENT
  Age: 75 Year
  Sex: Female
  Weight: 90.27 kg

DRUGS (4)
  1. COREG [Concomitant]
     Dates: start: 20110701
  2. FENTANYL-100 [Suspect]
     Dosage: CHANGED Q72H
     Route: 062
     Dates: start: 20110729, end: 20110804
  3. FENTANYL-100 [Suspect]
     Indication: BACK PAIN
     Dosage: CHANGED Q72H
     Route: 062
     Dates: start: 20110723
  4. EXELON [Concomitant]

REACTIONS (4)
  - HEART RATE DECREASED [None]
  - HYPOTENSION [None]
  - DRUG INEFFECTIVE [None]
  - OXYGEN SATURATION DECREASED [None]
